FAERS Safety Report 18034925 (Version 1)
Quarter: 2020Q3

REPORT INFORMATION
  Report Type: Spontaneous
  Country: US (occurrence: US)
  Receive Date: 20200715
  Receipt Date: 20200715
  Transmission Date: 20201103
  Serious: No
  Sender: FDA-Public Use
  Company Number: None

PATIENT

DRUGS (2)
  1. ZOLPDEM 5MG [Suspect]
     Active Substance: ZOLPIDEM TARTRATE
  2. ZOLMITRIPTAN 5MG ORODISPERIBLE TABLETS [Suspect]
     Active Substance: ZOLMITRIPTAN

REACTIONS (2)
  - Product selection error [None]
  - Transcription medication error [None]

NARRATIVE: CASE EVENT DATE: 2020
